FAERS Safety Report 5053097-2 (Version None)
Quarter: 2006Q3

REPORT INFORMATION
  Report Type: 
  Country: None (occurrence: None)
  Receive Date: 20060712
  Receipt Date: 20060622
  Transmission Date: 20061208
  Serious: Yes (Disabling)
  Sender: FDA-Public Use
  Company Number: US200606005054

PATIENT
  Age: 47 Year
  Sex: Female

DRUGS (5)
  1. CYMBALTA [Suspect]
     Indication: FIBROMYALGIA
     Dosage: 60 MG, DAILY (1/D), UNK
     Dates: start: 20050101
  2. ULTRACET [Concomitant]
  3. VICODIN (HYDROCODONE BITRATRATE, PARACETAMOL) [Concomitant]
  4. SYNTHROID [Concomitant]
  5. ZELNORM   /CAN/(TEGASEROD MALEATE) [Concomitant]

REACTIONS (2)
  - IMPAIRED WORK ABILITY [None]
  - INTERVERTEBRAL DISC PROTRUSION [None]
